FAERS Safety Report 23921959 (Version 4)
Quarter: 2025Q1

REPORT INFORMATION
  Report Type: Spontaneous
  Country: US (occurrence: US)
  Receive Date: 20240531
  Receipt Date: 20250210
  Transmission Date: 20250408
  Serious: Yes (Other)
  Sender: BRISTOL-MYERS SQUIBB COMPANY
  Company Number: US-BRISTOL-MYERS SQUIBB COMPANY-2024-085912

PATIENT
  Age: 78 Year
  Sex: Male
  Weight: 140.0 kg

DRUGS (3)
  1. REVLIMID [Suspect]
     Active Substance: LENALIDOMIDE
     Indication: Plasma cell myeloma
     Dosage: DAILY FOR 21 DAYS ON THEN 7 DAYS OFF
     Route: 048
  2. REVLIMID [Suspect]
     Active Substance: LENALIDOMIDE
     Dosage: 1 DAILY X 14 DAYS ON, OFF 14 DAYS, THEN REPEAT CYCLE.
     Route: 048
  3. REVLIMID [Suspect]
     Active Substance: LENALIDOMIDE
     Dosage: 14D ON 7D OFF REPEAT CYCLE/ 2WKSON/1WKOFF
     Route: 048
     Dates: start: 20240401

REACTIONS (7)
  - Neutropenia [Recovering/Resolving]
  - Off label use [Unknown]
  - Fatigue [Recovering/Resolving]
  - Dizziness [Recovering/Resolving]
  - Lower respiratory tract infection [Unknown]
  - Nasopharyngitis [Unknown]
  - Peripheral swelling [Recovering/Resolving]
